FAERS Safety Report 24745215 (Version 1)
Quarter: 2024Q4

REPORT INFORMATION
  Report Type: Report from Study
  Country: US (occurrence: US)
  Receive Date: 20241217
  Receipt Date: 20241217
  Transmission Date: 20250115
  Serious: Yes (Hospitalization, Other)
  Sender: ABBVIE
  Company Number: US-ABBVIE-6043811

PATIENT
  Age: 62 Year
  Sex: Female
  Weight: 59 kg

DRUGS (1)
  1. RINVOQ [Suspect]
     Active Substance: UPADACITINIB
     Indication: Giant cell arteritis
     Route: 048
     Dates: start: 2024

REACTIONS (7)
  - Cardiac failure congestive [Recovered/Resolved]
  - Blindness [Not Recovered/Not Resolved]
  - Cardiac arrest [Recovered/Resolved]
  - Embolism [Not Recovered/Not Resolved]
  - Off label use [Unknown]
  - Dyspnoea [Recovered/Resolved]
  - Unevaluable event [Recovered/Resolved]

NARRATIVE: CASE EVENT DATE: 20240101
